FAERS Safety Report 9532893 (Version 2)
Quarter: 2013Q2

REPORT INFORMATION
  Report Type: Spontaneous
  Country: US (occurrence: None)
  Receive Date: 20130418
  Receipt Date: 20130606
  Transmission Date: 20140414
  Serious: No
  Sender: FDA-Public Use
  Company Number: 2012PROUSA02343

PATIENT
  Age: 72 Year
  Sex: Male
  Weight: 97.1 kg

DRUGS (1)
  1. PROVENGE [Suspect]
     Indication: PROSTATE CANCER METASTATIC
     Dosage: SINGLE
     Route: 042
     Dates: start: 20121101, end: 20121101

REACTIONS (6)
  - Adverse event [None]
  - Nausea [None]
  - Vomiting [None]
  - Diarrhoea [None]
  - Chills [None]
  - Hypertension [None]
